FAERS Safety Report 5475059-3 (Version None)
Quarter: 2007Q3

REPORT INFORMATION
  Report Type: 
  Country: None (occurrence: None)
  Receive Date: 20070831
  Receipt Date: 20070626
  Transmission Date: 20080115
  Serious: Yes (Hospitalization)
  Sender: FDA-Public Use
  Company Number: 265000

PATIENT
  Age: 89 Year
  Sex: Female

DRUGS (1)
  1. NOVOLIN R [Suspect]
     Indication: DIABETES MELLITUS
     Dosage: INTRAVENOUS
     Route: 042

REACTIONS (1)
  - HYPOGLYCAEMIA [None]
